FAERS Safety Report 7579678-X (Version None)
Quarter: 2011Q2

REPORT INFORMATION
  Report Type: 
  Country: None (occurrence: None)
  Receive Date: 20110622
  Receipt Date: 20110608
  Transmission Date: 20111010
  Serious: Yes (Hospitalization)
  Sender: FDA-Public Use
  Company Number: PIR#400102869

PATIENT
  Age: 43 Year
  Sex: Female

DRUGS (1)
  1. CEFTRIAXONE [Suspect]

REACTIONS (13)
  - LOSS OF CONSCIOUSNESS [None]
  - INTESTINAL OBSTRUCTION [None]
  - HAEMOLYTIC ANAEMIA [None]
  - FATIGUE [None]
  - BLOOD POTASSIUM DECREASED [None]
  - DECREASED APPETITE [None]
  - ALANINE AMINOTRANSFERASE INCREASED [None]
  - BLOOD BILIRUBIN INCREASED [None]
  - PORTAL VEIN THROMBOSIS [None]
  - MELAENA [None]
  - ANAEMIA [None]
  - BACK PAIN [None]
  - DIZZINESS [None]
